FAERS Safety Report 20945915 (Version 1)
Quarter: 2022Q2

REPORT INFORMATION
  Report Type: Other
  Country: CA (occurrence: CA)
  Receive Date: 20220610
  Receipt Date: 20220610
  Transmission Date: 20220721
  Serious: Yes (Other)
  Sender: FDA-Public Use
  Company Number: CA-APOTEX-2021AP039470

PATIENT
  Age: 40 Year
  Sex: Male

DRUGS (1)
  1. APO-VARENICLINE [Suspect]
     Active Substance: VARENICLINE TARTRATE
     Indication: Ex-tobacco user
     Dosage: 0.5 MILLIGRAM, QD
     Route: 048

REACTIONS (5)
  - Nightmare [Unknown]
  - Chest pain [Unknown]
  - Somnolence [Unknown]
  - Abdominal discomfort [Unknown]
  - Suicidal ideation [Unknown]
